FAERS Safety Report 19583877 (Version 4)
Quarter: 2022Q2

REPORT INFORMATION
  Report Type: Report from Study
  Country: US (occurrence: US)
  Receive Date: 20210720
  Receipt Date: 20220418
  Transmission Date: 20220721
  Serious: No
  Sender: FDA-Public Use
  Company Number: NVSC2021US154737

PATIENT
  Sex: Female

DRUGS (1)
  1. COSENTYX [Suspect]
     Active Substance: SECUKINUMAB
     Indication: Ankylosing spondylitis
     Dosage: 150 MG, QW (BENEATH THE SKIN, USUALLY VIA INJECTION)
     Route: 058

REACTIONS (12)
  - Transient acantholytic dermatosis [Unknown]
  - Blister [Unknown]
  - Rash [Unknown]
  - Influenza like illness [Unknown]
  - Nasal congestion [Unknown]
  - Injection site pain [Unknown]
  - Constipation [Unknown]
  - Arthralgia [Unknown]
  - Back pain [Unknown]
  - Fatigue [Unknown]
  - Diarrhoea [Unknown]
  - Pain in extremity [Unknown]
